FAERS Safety Report 4993519-6 (Version None)
Quarter: 2006Q2

REPORT INFORMATION
  Report Type: 
  Country: None (occurrence: None)
  Receive Date: 20060503
  Receipt Date: 20060503
  Transmission Date: 20061013
  Serious: Yes (Other)
  Sender: FDA-Public Use
  Company Number: None

PATIENT
  Sex: Male
  Weight: 83 kg

DRUGS (6)
  1. BUPROPION HCL [Suspect]
     Indication: SMOKING CESSATION THERAPY
     Dosage: 150 MG PO BID
     Route: 048
     Dates: start: 20060406, end: 20060423
  2. HABITROL [Suspect]
     Indication: SMOKING CESSATION THERAPY
     Dosage: 1 PATCH APPLIED DAILY TOPICAL
     Route: 061
     Dates: start: 20060406, end: 20060428
  3. DARVOCET [Concomitant]
  4. LORATADINE [Concomitant]
  5. HYDROXYZINE [Concomitant]
  6. HYDROCHLOROTHIAZIDE [Concomitant]

REACTIONS (1)
  - DYSPNOEA [None]
